FAERS Safety Report 10216468 (Version 1)
Quarter: 2014Q2

REPORT INFORMATION
  Report Type: Spontaneous
  Country: NZ (occurrence: NZ)
  Receive Date: 20140604
  Receipt Date: 20140604
  Transmission Date: 20141212
  Serious: Yes (Other)
  Sender: FDA-Public Use
  Company Number: NZ-ACTAVIS-2014-11909

PATIENT
  Age: 71 Year
  Sex: Female

DRUGS (1)
  1. RISPERIDONE (UNKNOWN) [Suspect]
     Indication: SCHIZOPHRENIA
     Dosage: 25 MG, 3/WEEK
     Route: 030

REACTIONS (3)
  - Excessive masturbation [Recovered/Resolved]
  - Anorgasmia [Recovered/Resolved]
  - Galactorrhoea [Recovered/Resolved]
